FAERS Safety Report 9183767 (Version 1)
Quarter: 2013Q1

REPORT INFORMATION
  Report Type: Spontaneous
  Country: US (occurrence: US)
  Receive Date: 20130322
  Receipt Date: 20130322
  Transmission Date: 20140127
  Serious: No
  Sender: FDA-Public Use
  Company Number: US-TARO-2012P1059826

PATIENT
  Age: 1 Month
  Sex: Female
  Weight: 5.9 kg

DRUGS (1)
  1. NYSTATIN [Suspect]
     Indication: ACCIDENTAL EXPOSURE TO PRODUCT
     Route: 048
     Dates: start: 20120819, end: 20120822

REACTIONS (5)
  - Diarrhoea [Recovered/Resolved]
  - Rash [Recovered/Resolved]
  - Wrong drug administered [Recovered/Resolved]
  - Vomiting [Recovered/Resolved]
  - Product tampering [Unknown]
